FAERS Safety Report 10090569 (Version 2)
Quarter: 2014Q2

REPORT INFORMATION
  Report Type: Spontaneous
  Country: US (occurrence: US)
  Receive Date: 20140421
  Receipt Date: 20140513
  Transmission Date: 20141212
  Serious: Yes (Hospitalization)
  Sender: FDA-Public Use
  Company Number: US-BAYER-2014-056715

PATIENT
  Age: 36 Year
  Sex: Female

DRUGS (10)
  1. YAZ [Suspect]
     Indication: POLYCYSTIC OVARIES
  2. CELEXA [Concomitant]
     Dosage: 20 MG, QD
  3. NEURONTIN [Concomitant]
     Dosage: 200 MG, BID
  4. NEURONTIN [Concomitant]
  5. ACIPHEX [Concomitant]
     Dosage: 200 MG, BID
  6. PRILOSEC [Concomitant]
     Dosage: 20 MG, DAILY
     Route: 048
  7. GLUMETZA [Concomitant]
  8. CELEBREX [Concomitant]
     Indication: LYMPHADENOPATHY
     Dosage: 200 MG, BID
     Route: 048
  9. NAPROXEN [Concomitant]
     Dosage: 500 MG, UNK
     Dates: start: 20071010
  10. POLYETHYLENE GLYCOL [Concomitant]
     Dosage: UNK
     Dates: start: 20071121

REACTIONS (1)
  - Pulmonary embolism [Recovered/Resolved]
